FAERS Safety Report 10640927 (Version 1)
Quarter: 2014Q4

REPORT INFORMATION
  Report Type: Spontaneous
  Country: US (occurrence: None)
  Receive Date: 20141208
  Receipt Date: 20141208
  Transmission Date: 20150529
  Serious: Yes (Hospitalization, Disabling)
  Sender: FDA-Public Use
  Company Number: None

PATIENT
  Age: 88 Year
  Sex: Male
  Weight: 62.14 kg

DRUGS (16)
  1. RAPAFLO [Concomitant]
     Active Substance: SILODOSIN
  2. VITAMIN D3 [Concomitant]
     Active Substance: CHOLECALCIFEROL
  3. S-ADENOSYLMETHIONINE SULFATE P-TOLUENESULFONATE [Concomitant]
     Active Substance: ADEMETIONINE SULFATE TOSILATE
  4. TIMOLOL [Concomitant]
     Active Substance: TIMOLOL
  5. OMEGA 3 [Concomitant]
     Active Substance: OMEGA-3 FATTY ACIDS
  6. FISH OIL [Concomitant]
     Active Substance: FISH OIL
  7. BILI BERRY [Concomitant]
  8. TRAVATAN [Concomitant]
     Active Substance: TRAVOPROST
  9. PROSTATE FORMULA [Concomitant]
  10. ZEAXANTHAN [Concomitant]
  11. ASTAXANTHAN [Concomitant]
  12. ESCITALOPRAM [Suspect]
     Active Substance: ESCITALOPRAM OXALATE
     Indication: DEPRESSION
     Dosage: ONE PILL ONCE DAILY TAKEN BY MOUTH
     Route: 048
     Dates: start: 20140702, end: 20140820
  13. MULTIVITAMIN [Concomitant]
     Active Substance: VITAMINS
  14. COENZYME Q10 [Concomitant]
     Active Substance: UBIDECARENONE
  15. PROBIOTIC [Concomitant]
     Active Substance: PROBIOTICS NOS
  16. VITAMIN C [Concomitant]
     Active Substance: ASCORBIC ACID

REACTIONS (19)
  - Speech disorder [None]
  - Urinary incontinence [None]
  - Memory impairment [None]
  - Muscular weakness [None]
  - Gait disturbance [None]
  - Fall [None]
  - Delusion [None]
  - Dyspnoea [None]
  - Hallucination [None]
  - Agitation [None]
  - Unresponsive to stimuli [None]
  - Hypersomnia [None]
  - Influenza like illness [None]
  - Depression [None]
  - Nightmare [None]
  - Confusional state [None]
  - Depressed level of consciousness [None]
  - Fatigue [None]
  - Disturbance in attention [None]

NARRATIVE: CASE EVENT DATE: 20140824
